FAERS Safety Report 20211536 (Version 1)
Quarter: 2021Q4

REPORT INFORMATION
  Report Type: Spontaneous
  Country: CO (occurrence: CO)
  Receive Date: 20211221
  Receipt Date: 20211221
  Transmission Date: 20220304
  Serious: Yes (Death, Hospitalization)
  Sender: FDA-Public Use
  Company Number: CO-BAXTER-2021BAX041237

PATIENT
  Age: 38 Year
  Sex: Male
  Weight: 44 kg

DRUGS (2)
  1. DIANEAL PD-2 WITH DEXTROSE [Suspect]
     Active Substance: CALCIUM CHLORIDE\DEXTROSE\MAGNESIUM CHLORIDE\SODIUM CHLORIDE\SODIUM LACTATE
     Indication: Peritoneal dialysis
     Dosage: 2 BAGS
     Route: 033
     Dates: start: 20211025, end: 20211212
  2. DIANEAL PD-2 WITH DEXTROSE [Suspect]
     Active Substance: CALCIUM CHLORIDE\DEXTROSE\MAGNESIUM CHLORIDE\SODIUM CHLORIDE\SODIUM LACTATE
     Indication: Peritoneal dialysis
     Dosage: 2 BAGS
     Route: 033
     Dates: start: 20211025, end: 20211212

REACTIONS (3)
  - Cardio-respiratory arrest [Fatal]
  - Pulmonary oedema [Unknown]
  - Pneumonia [Unknown]

NARRATIVE: CASE EVENT DATE: 20211112
